FAERS Safety Report 8207743-2 (Version None)
Quarter: 2012Q1

REPORT INFORMATION
  Report Type: 
  Country: None (occurrence: None)
  Receive Date: 20120314
  Receipt Date: 20120309
  Transmission Date: 20120608
  Serious: Yes (Hospitalization, Other)
  Sender: FDA-Public Use
  Company Number: US-BAYER-2012-006615

PATIENT
  Age: 72 Year
  Sex: Male

DRUGS (3)
  1. NEXAVAR [Suspect]
     Dosage: 200 MG, QD
  2. NEXAVAR [Suspect]
     Dosage: 400 MG, BID
     Dates: end: 20120302
  3. NEXAVAR [Suspect]
     Indication: HEPATIC NEOPLASM MALIGNANT
     Dosage: 200 MG, BID
     Dates: start: 20120113

REACTIONS (7)
  - DEHYDRATION [None]
  - BLOOD BILIRUBIN INCREASED [None]
  - BLOOD GLUCOSE INCREASED [None]
  - HEPATIC ENZYME INCREASED [None]
  - FATIGUE [None]
  - ASTHENIA [None]
  - FREQUENT BOWEL MOVEMENTS [None]
